FAERS Safety Report 23736482 (Version 1)
Quarter: 2024Q2

REPORT INFORMATION
  Report Type: Spontaneous
  Country: US (occurrence: US)
  Receive Date: 20240412
  Receipt Date: 20240412
  Transmission Date: 20240716
  Serious: Yes (Other)
  Sender: FDA-Public Use
  Company Number: US-Merck Healthcare KGaA-2024018644

PATIENT
  Sex: Male

DRUGS (4)
  1. REBIF [Suspect]
     Active Substance: INTERFERON BETA-1A
     Indication: Multiple sclerosis
  2. ERYTHROMYCIN [Concomitant]
     Active Substance: ERYTHROMYCIN
  3. MORPHINE [Concomitant]
     Active Substance: MORPHINE
  4. ACRIVASTINE [Concomitant]
     Active Substance: ACRIVASTINE

REACTIONS (10)
  - Neuropathy peripheral [Unknown]
  - Hypermetabolism [Unknown]
  - Rash [Unknown]
  - Depression [Unknown]
  - Multiple sclerosis relapse [Unknown]
  - Sensory disturbance [Unknown]
  - Asthma [Unknown]
  - Stress [Unknown]
  - Anxiety [Unknown]
  - Panic attack [Unknown]
